FAERS Safety Report 24823443 (Version 4)
Quarter: 2025Q1

REPORT INFORMATION
  Report Type: Report from Study
  Country: GB (occurrence: GB)
  Receive Date: 20250109
  Receipt Date: 20250328
  Transmission Date: 20250408
  Serious: Yes (Hospitalization, Other)
  Sender: TAKEDA
  Company Number: GB-TAKEDA-2024TUS001374

PATIENT
  Sex: Female

DRUGS (3)
  1. VEDOLIZUMAB [Suspect]
     Active Substance: VEDOLIZUMAB
     Indication: Colitis ulcerative
     Dosage: 108 MILLIGRAM, Q2WEEKS
  2. VEDOLIZUMAB [Suspect]
     Active Substance: VEDOLIZUMAB
  3. MESALAMINE [Suspect]
     Active Substance: MESALAMINE
     Indication: Product used for unknown indication

REACTIONS (6)
  - Infection [Unknown]
  - Lower respiratory tract infection [Unknown]
  - Drug hypersensitivity [Unknown]
  - Malaise [Unknown]
  - Urinary tract infection [Unknown]
  - Injection site reaction [Unknown]
